FAERS Safety Report 5239776-2 (Version None)
Quarter: 2007Q1

REPORT INFORMATION
  Report Type: 
  Country: None (occurrence: None)
  Receive Date: 20070216
  Receipt Date: 20070205
  Transmission Date: 20070707
  Serious: Yes (Congenital Anomaly)
  Sender: FDA-Public Use
  Company Number: ES-ELI_LILLY_AND_COMPANY-ES200702001286

PATIENT
  Sex: Male
  Weight: 3.14 kg

DRUGS (6)
  1. HUMULIN N [Suspect]
     Route: 064
     Dates: start: 20060401, end: 20061227
  2. FURANTOINA [Concomitant]
     Dosage: 150 MG, 3/D
     Route: 064
     Dates: start: 20060901
  3. FOSFOCINA [Concomitant]
     Dates: start: 20060801
  4. ALDOMET [Concomitant]
     Dosage: 500 MG, 2/D
     Route: 064
     Dates: start: 20060401, end: 20061227
  5. FOLI-DOCE [Concomitant]
     Route: 064
     Dates: start: 20060401, end: 20061227
  6. POTASSIUM IODIDE [Concomitant]
     Dosage: UNK, UNK
     Route: 064
     Dates: start: 20060401, end: 20061227

REACTIONS (2)
  - CONGENITAL HAND MALFORMATION [None]
  - DRUG EXPOSURE DURING PREGNANCY [None]
